FAERS Safety Report 9482096 (Version 1)
Quarter: 2013Q3

REPORT INFORMATION
  Report Type: Spontaneous
  Country: HR (occurrence: HR)
  Receive Date: 20130828
  Receipt Date: 20130828
  Transmission Date: 20140515
  Serious: Yes (Death)
  Sender: FDA-Public Use
  Company Number: HR-MYLANLABS-2013S1018451

PATIENT
  Age: 35 Year
  Sex: Male

DRUGS (4)
  1. FLUOROURACIL [Suspect]
     Indication: GASTROINTESTINAL CARCINOMA
     Dosage: 800MG BOLUS; PLUS 4.8G/46H INFUSION (FOLFIRI CHEMOTHERAPY)
     Route: 065
  2. FLUOROURACIL [Suspect]
     Indication: GASTROINTESTINAL CARCINOMA
     Dosage: 4.8G/46H INFUSION (FOLFIRI CHEMOTHERAPY)
     Route: 065
  3. IRINOTECAN [Concomitant]
     Indication: GASTROINTESTINAL CARCINOMA
     Dosage: 360MG (FOLFIRI CHEMOTHERAPY)
     Route: 065
  4. FOLINIC ACID [Concomitant]
     Indication: GASTROINTESTINAL CARCINOMA
     Dosage: 800MG (FOLFIRI CHEMOTHERAPY)
     Route: 065

REACTIONS (9)
  - Stomatitis [Not Recovered/Not Resolved]
  - Gastrointestinal inflammation [Not Recovered/Not Resolved]
  - Leukopenia [Not Recovered/Not Resolved]
  - Thrombocytopenia [Not Recovered/Not Resolved]
  - Hypotension [Not Recovered/Not Resolved]
  - Tachycardia [Not Recovered/Not Resolved]
  - Hypoxia [Not Recovered/Not Resolved]
  - Arrhythmia [Not Recovered/Not Resolved]
  - Cardiac arrest [Fatal]
